FAERS Safety Report 12996701 (Version 1)
Quarter: 2016Q4

REPORT INFORMATION
  Report Type: Report from Study
  Country: CN (occurrence: CN)
  Receive Date: 20161204
  Receipt Date: 20161204
  Transmission Date: 20170207
  Serious: Yes (Death)
  Sender: FDA-Public Use
  Company Number: CN-ROCHE-1729360

PATIENT
  Age: 66 Year
  Sex: Male
  Weight: 63 kg

DRUGS (2)
  1. AVASTIN [Suspect]
     Active Substance: BEVACIZUMAB
     Route: 041
     Dates: end: 20160929
  2. AVASTIN [Suspect]
     Active Substance: BEVACIZUMAB
     Indication: COLON CANCER
     Dosage: ALTERNATE USE 400MG AND 500MG
     Route: 041
     Dates: start: 20150919

REACTIONS (4)
  - Nasopharyngitis [Not Recovered/Not Resolved]
  - Bone marrow failure [Unknown]
  - Ileus [Fatal]
  - Peritonitis [Fatal]

NARRATIVE: CASE EVENT DATE: 20160222
